FAERS Safety Report 17639687 (Version 1)
Quarter: 2020Q2

REPORT INFORMATION
  Report Type: Spontaneous
  Country: US (occurrence: US)
  Receive Date: 20200407
  Receipt Date: 20200407
  Transmission Date: 20200713
  Serious: Yes (Other)
  Sender: FDA-Public Use
  Company Number: US-PFIZER INC-2020141628

PATIENT
  Age: 26 Year
  Sex: Female

DRUGS (1)
  1. PROCAINAMIDE HCL [Suspect]
     Active Substance: PROCAINAMIDE HYDROCHLORIDE
     Indication: DIAGNOSTIC PROCEDURE
     Dosage: UNK

REACTIONS (1)
  - Brugada syndrome [Unknown]
